FAERS Safety Report 6510488-8 (Version None)
Quarter: 2009Q4

REPORT INFORMATION
  Report Type: 
  Country: None (occurrence: None)
  Receive Date: 20091221
  Receipt Date: 20091221
  Transmission Date: 20100525
  Serious: Yes (Life-Threatening, Hospitalization)
  Sender: FDA-Public Use
  Company Number: None

PATIENT
  Age: 53 Year
  Weight: 136.0791 kg

DRUGS (1)
  1. CLONIDINE [Suspect]

REACTIONS (2)
  - TACHYCARDIA [None]
  - URTICARIA [None]
